FAERS Safety Report 5777076-2 (Version None)
Quarter: 2008Q2

REPORT INFORMATION
  Report Type: 
  Country: None (occurrence: None)
  Receive Date: 20080618
  Receipt Date: 20080611
  Transmission Date: 20081010
  Serious: Yes (Hospitalization)
  Sender: FDA-Public Use
  Company Number: FR-ASTRAZENECA-2008CG00910

PATIENT
  Age: 30324 Day
  Sex: Male

DRUGS (16)
  1. NEXIUM [Suspect]
     Route: 048
  2. PREVISCAN [Suspect]
     Route: 048
  3. LEUPROLIDE ACETATE [Suspect]
     Route: 058
     Dates: start: 20080101
  4. RAMIPRIL [Suspect]
     Route: 048
  5. LASILIX [Suspect]
     Route: 048
  6. ASPIRIN [Suspect]
     Route: 048
  7. CARDENSIEL [Suspect]
     Route: 048
  8. TAMSULOSIN HCL [Suspect]
     Route: 048
  9. ZOLOFT [Suspect]
     Route: 048
  10. VASTEN [Concomitant]
  11. ALDACTONE [Concomitant]
  12. LEXOMIL [Concomitant]
  13. ZOPICLONE [Concomitant]
  14. TRANSILANE [Concomitant]
  15. CARBOSYLANE [Concomitant]
  16. DEBRIDAT [Concomitant]

REACTIONS (1)
  - TOXIC SKIN ERUPTION [None]
